FAERS Safety Report 15625597 (Version 1)
Quarter: 2018Q4

REPORT INFORMATION
  Report Type: Spontaneous
  Country: US (occurrence: US)
  Receive Date: 20181116
  Receipt Date: 20181116
  Transmission Date: 20190205
  Serious: No
  Sender: FDA-Public Use
  Company Number: US-BAYER-2018-212619

PATIENT
  Age: 65 Year
  Sex: Female

DRUGS (2)
  1. ACARBOSE. [Suspect]
     Active Substance: ACARBOSE
     Indication: HYPOGLYCAEMIA
  2. VERAPAMIL [Suspect]
     Active Substance: VERAPAMIL HYDROCHLORIDE

REACTIONS (2)
  - Hypoglycaemia [None]
  - Drug ineffective [None]
